FAERS Safety Report 9327114 (Version 1)
Quarter: 2013Q2

REPORT INFORMATION
  Report Type: Spontaneous
  Country: US (occurrence: US)
  Receive Date: 20130604
  Receipt Date: 20130604
  Transmission Date: 20140414
  Serious: Yes (Other)
  Sender: FDA-Public Use
  Company Number: US-AMGEN-USASP2013033982

PATIENT
  Sex: Female

DRUGS (2)
  1. ENBREL [Suspect]
     Indication: RHEUMATOID ARTHRITIS
     Dosage: UNK
  2. ORENCIA [Suspect]
     Dosage: UNK

REACTIONS (7)
  - Urinary tract infection [Recovered/Resolved]
  - Renal pain [Unknown]
  - Pyrexia [Unknown]
  - Tendon pain [Recovered/Resolved]
  - Urticaria [Unknown]
  - Kidney infection [Recovered/Resolved]
  - Bronchitis [Unknown]
